FAERS Safety Report 11544224 (Version 1)
Quarter: 2015Q3

REPORT INFORMATION
  Report Type: Spontaneous
  Country: DE (occurrence: DE)
  Receive Date: 20150924
  Receipt Date: 20150924
  Transmission Date: 20151125
  Serious: Yes (Other)
  Sender: FDA-Public Use
  Company Number: DE-DRREDDYS-GER/GER/15/0050727

PATIENT
  Age: 28 Year
  Sex: Female
  Weight: 60 kg

DRUGS (6)
  1. SOBELIN [Suspect]
     Active Substance: CLINDAMYCIN HYDROCHLORIDE
     Indication: VAGINAL PH INCREASED
     Route: 067
  2. AMPICILLIN [Suspect]
     Active Substance: AMPICILLIN
     Indication: LISTERIOSIS
     Route: 048
     Dates: start: 20150324, end: 20150405
  3. FOLS?URE [Concomitant]
     Indication: PROPHYLAXIS OF NEURAL TUBE DEFECT
     Route: 048
  4. CEFUROXIM [Concomitant]
     Active Substance: CEFUROXIME
     Indication: URINARY TRACT INFECTION BACTERIAL
     Route: 048
     Dates: start: 20150513, end: 20150522
  5. AMPICILLIN [Suspect]
     Active Substance: AMPICILLIN
     Indication: STREPTOCOCCUS TEST POSITIVE
     Route: 042
  6. CITALOPRAM [Suspect]
     Active Substance: CITALOPRAM HYDROBROMIDE
     Indication: DEPRESSION
     Route: 048
     Dates: start: 20140902, end: 20150611

REACTIONS (6)
  - Polyhydramnios [Unknown]
  - Meconium in amniotic fluid [Unknown]
  - Caesarean section [Unknown]
  - Exposure during pregnancy [Unknown]
  - Premature rupture of membranes [Unknown]
  - Cephalo-pelvic disproportion [Unknown]
